FAERS Safety Report 22190466 (Version 1)
Quarter: 2023Q2

REPORT INFORMATION
  Report Type: Report from Study
  Country: CL (occurrence: CL)
  Receive Date: 20230410
  Receipt Date: 20230410
  Transmission Date: 20230721
  Serious: Yes (Other)
  Sender: FDA-Public Use
  Company Number: CL-002147023-NVSC2023CL079659

PATIENT
  Age: 13 Year
  Sex: Female
  Weight: 25 kg

DRUGS (1)
  1. OMNITROPE [Suspect]
     Active Substance: SOMATROPIN
     Indication: Product used for unknown indication
     Dosage: UNK UNK, QD (10MG/1.5ML/ 1.4MG)
     Route: 058
     Dates: start: 20211013

REACTIONS (1)
  - Ovarian neoplasm [Unknown]

NARRATIVE: CASE EVENT DATE: 20220612
